FAERS Safety Report 9795869 (Version 1)
Quarter: 2014Q1

REPORT INFORMATION
  Report Type: Spontaneous
  Country: US (occurrence: US)
  Receive Date: 20140103
  Receipt Date: 20140103
  Transmission Date: 20141002
  Serious: Yes (Death, Other)
  Sender: FDA-Public Use
  Company Number: US-UCBSA-107589

PATIENT
  Age: 33 Year
  Sex: Male

DRUGS (7)
  1. ALPRAZOLAM [Suspect]
     Dosage: INGESTION
     Route: 048
  2. OXYCODONE [Suspect]
     Dosage: INGESTION
     Route: 048
  3. TRAZODONE [Suspect]
     Dosage: INGESTION
     Route: 048
  4. COCAINE [Suspect]
     Dosage: INGESTION
     Route: 048
  5. CLONAZEPAM [Suspect]
     Dosage: INGESTION
     Route: 048
  6. TRAMADOL [Suspect]
     Dosage: INGESTION
     Route: 048
  7. DOXYLAMINE [Suspect]
     Dosage: INGESTION
     Route: 048

REACTIONS (1)
  - Drug abuse [Fatal]
